FAERS Safety Report 8221092-8 (Version None)
Quarter: 2012Q1

REPORT INFORMATION
  Report Type: 
  Country: None (occurrence: None)
  Receive Date: 20120320
  Receipt Date: 20120313
  Transmission Date: 20120608
  Serious: Yes (Hospitalization, Other)
  Sender: FDA-Public Use
  Company Number: DE-ELI_LILLY_AND_COMPANY-DE201203003714

PATIENT

DRUGS (1)
  1. EFFIENT [Suspect]
     Dosage: 10 MG, BID
     Route: 048

REACTIONS (5)
  - HAEMORRHAGE [None]
  - ENDOSCOPY UPPER GASTROINTESTINAL TRACT [None]
  - GASTROINTESTINAL SURGERY [None]
  - OFF LABEL USE [None]
  - OVERDOSE [None]
